FAERS Safety Report 8059683-X (Version None)
Quarter: 2012Q1

REPORT INFORMATION
  Report Type: 
  Country: None (occurrence: None)
  Receive Date: 20120120
  Receipt Date: 20120111
  Transmission Date: 20120608
  Serious: Yes (Other)
  Sender: FDA-Public Use
  Company Number: PHHY2012BR003297

PATIENT
  Sex: Female

DRUGS (8)
  1. VASCLIN [Suspect]
     Indication: HYPERTENSION
     Dosage: 1 DF (100/40MG) DAILY
     Route: 048
  2. JANUMET [Concomitant]
     Indication: DIABETES MELLITUS
     Dosage: 1 DF, 850/50 MG, BID
     Route: 048
  3. LESCOL XL [Suspect]
     Dosage: 1 DF DAILY
     Route: 048
  4. RASILEZ [Suspect]
     Indication: HYPERTENSION
     Dosage: 1 TABLET DAILY
     Route: 048
  5. BISOPROLOL FUMARATE [Suspect]
     Indication: HYPERTENSION
     Dosage: 25 MG DAILY
  6. HYGROTON [Suspect]
     Dosage: 25 MG DAILY
     Route: 048
  7. EXFORGE [Suspect]
     Indication: HYPERTENSION
     Dosage: 1 DF (320/5MG) DAILY
     Route: 048
  8. AMARYL [Concomitant]
     Indication: DIABETES MELLITUS
     Dosage: 1 TABLET DAILY ORALLY IN FASTING
     Route: 048

REACTIONS (4)
  - CARDIAC DISCOMFORT [None]
  - FATIGUE [None]
  - CHEST DISCOMFORT [None]
  - DIABETES MELLITUS [None]
